FAERS Safety Report 8069500-X (Version None)
Quarter: 2012Q1

REPORT INFORMATION
  Report Type: 
  Country: None (occurrence: None)
  Receive Date: 20120125
  Receipt Date: 20120119
  Transmission Date: 20120608
  Serious: Yes (Hospitalization)
  Sender: FDA-Public Use
  Company Number: GR-US-EMD SERONO, INC.-7107958

PATIENT
  Age: 10 Year
  Sex: Male

DRUGS (2)
  1. SAIZEN [Suspect]
     Indication: PRODUCT USED FOR UNKNOWN INDICATION
     Dates: start: 20110101, end: 20110725
  2. SAIZEN [Suspect]
     Dates: start: 20110901

REACTIONS (1)
  - OSTEOMYELITIS [None]
